FAERS Safety Report 17510639 (Version 3)
Quarter: 2020Q2

REPORT INFORMATION
  Report Type: Spontaneous
  Country: DE (occurrence: DE)
  Receive Date: 20200306
  Receipt Date: 20200401
  Transmission Date: 20200713
  Serious: Yes (Hospitalization, Other)
  Sender: FDA-Public Use
  Company Number: NVSC2020DE061222

PATIENT
  Age: 75 Year
  Sex: Male

DRUGS (3)
  1. CARVEDILOL HEXAL 6,25 MG TABLETTEN [Suspect]
     Active Substance: CARVEDILOL
     Dosage: 25 MG
     Route: 065
     Dates: start: 20191110, end: 202002
  2. CARVEDILOL HEXAL 6,25 MG TABLETTEN [Suspect]
     Active Substance: CARVEDILOL
     Indication: CARDIOMYOPATHY
     Dosage: UNK, QD
     Route: 065
     Dates: start: 2013, end: 20191110
  3. CARVEDILOL HEXAL 6,25 MG TABLETTEN [Suspect]
     Active Substance: CARVEDILOL
     Dosage: 6.25 MG, BID
     Route: 065
     Dates: start: 202002

REACTIONS (4)
  - Femoral neck fracture [Unknown]
  - Pneumonia [Unknown]
  - Product use in unapproved indication [Unknown]
  - Atrial fibrillation [Unknown]

NARRATIVE: CASE EVENT DATE: 2013
